FAERS Safety Report 9055122 (Version 4)
Quarter: 2013Q4

REPORT INFORMATION
  Report Type: Report from Study
  Country: CA (occurrence: CA)
  Receive Date: 20130206
  Receipt Date: 20131217
  Transmission Date: 20140711
  Serious: Yes (Death, Disabling)
  Sender: FDA-Public Use
  Company Number: PHHY2013CA010810

PATIENT
  Sex: Female

DRUGS (11)
  1. ACLASTA [Suspect]
     Indication: OSTEOPOROSIS
     Dosage: 5 MG, UNK
     Route: 042
     Dates: start: 20120307
  2. ACLASTA [Suspect]
     Dosage: 5 MG, UNK
     Route: 042
     Dates: start: 20130307
  3. EFFEXOR [Concomitant]
  4. SEROQUEL [Concomitant]
  5. PANTOLOC//PANTOPRAZOLE SODIUM SESQUIHYDRATE [Concomitant]
  6. FLOVENT [Concomitant]
  7. FLORINEF [Concomitant]
  8. PREDNISONE [Concomitant]
  9. ASA [Concomitant]
  10. RIVOTRIL [Concomitant]
  11. VENTOLIN [Concomitant]

REACTIONS (4)
  - Lung disorder [Fatal]
  - Blindness [Not Recovered/Not Resolved]
  - Visual field defect [Not Recovered/Not Resolved]
  - Intraocular pressure increased [Not Recovered/Not Resolved]
